FAERS Safety Report 4273315-8 (Version None)
Quarter: 2004Q1

REPORT INFORMATION
  Report Type: 
  Country: None (occurrence: None)
  Receive Date: 20040115
  Receipt Date: 20040115
  Transmission Date: 20041129
  Serious: Yes (Other)
  Sender: FDA-Public Use
  Company Number: None

PATIENT
  Sex: Male
  Weight: 84.8226 kg

DRUGS (7)
  1. ACETAMINOPHEN [Suspect]
     Indication: NECK PAIN
     Dosage: 650 MG PO PRN
     Route: 048
     Dates: start: 20031207
  2. POTASSIUM CHLORIDE [Concomitant]
  3. LISINOPRIL [Concomitant]
  4. LEVOTHYROXIN [Concomitant]
  5. GLIPAZIDE [Concomitant]
  6. FUROSEMIDE [Concomitant]
  7. CALCIUM CARBONATE [Concomitant]

REACTIONS (3)
  - ERYTHEMA [None]
  - RASH PAPULAR [None]
  - RASH PRURITIC [None]
